FAERS Safety Report 9305358 (Version 2)
Quarter: 2013Q3

REPORT INFORMATION
  Report Type: Spontaneous
  Country: ES (occurrence: ES)
  Receive Date: 20130523
  Receipt Date: 20130702
  Transmission Date: 20140515
  Serious: Yes (Hospitalization)
  Sender: FDA-Public Use
  Company Number: ES-PFIZER INC-2013157489

PATIENT
  Age: 87 Year
  Sex: Female

DRUGS (4)
  1. TAZOCEL [Suspect]
     Indication: PYELONEPHRITIS ACUTE
     Dosage: UNK
     Route: 042
     Dates: start: 20121006, end: 20121009
  2. PANTOPRAZOL [Interacting]
     Dosage: 40 MG, 1X/DAY
     Dates: start: 20121006, end: 20121010
  3. CLEXANE [Interacting]
     Indication: ATRIAL FIBRILLATION
     Dosage: 60 MG, 2X/DAY
     Route: 058
     Dates: start: 20121006, end: 20121010
  4. SINTROM [Interacting]
     Indication: ATRIAL FIBRILLATION
     Dosage: UNK
     Route: 048
     Dates: start: 2004, end: 20121006

REACTIONS (2)
  - Coagulopathy [Recovered/Resolved]
  - Drug interaction [Recovered/Resolved]
